FAERS Safety Report 16654026 (Version 3)
Quarter: 2019Q3

REPORT INFORMATION
  Report Type: Spontaneous
  Country: ES (occurrence: ES)
  Receive Date: 20190731
  Receipt Date: 20190813
  Transmission Date: 20191004
  Serious: Yes (Death, Other)
  Sender: FDA-Public Use
  Company Number: PHHY2019ES065559

PATIENT
  Age: 5 Year
  Sex: Female

DRUGS (11)
  1. TOPOTECAN HYDROCHLORIDE. [Suspect]
     Active Substance: TOPOTECAN HYDROCHLORIDE
     Dosage: 0.7 MG/M2, QD (SECOND THERAPEUTIC ADMINISTRATION, ON DAY 15)
     Route: 041
  2. NORMAL SALINE [Concomitant]
     Active Substance: SODIUM CHLORIDE
     Indication: DIURETIC THERAPY
     Dosage: UNK (2.01 PER 1.73 M2/24 H FOR 4 H BEFORE TREATMENT)
     Route: 041
  3. IOBENGUANE (131 I) [Suspect]
     Active Substance: IOBENGUANE I-131
     Indication: NEUROBLASTOMA
     Dosage: FIRST DOSE: 9.1
     Route: 041
  4. POTASSIUM IODIDE. [Concomitant]
     Active Substance: POTASSIUM IODIDE
     Indication: THYROID FUNCTION TEST NORMAL
     Dosage: UNK
     Route: 065
  5. SALINE [Concomitant]
     Active Substance: SODIUM CHLORIDE
     Indication: NEUROBLASTOMA
  6. ONDANSETRON [Concomitant]
     Active Substance: ONDANSETRON
     Indication: POLYURIA
     Dosage: 40 UG/KG DAILY; PRE-MEDICATION
     Route: 065
  7. ONDANSETRON HYDROCHLORIDE. [Concomitant]
     Active Substance: ONDANSETRON HYDROCHLORIDE
     Indication: PRODUCT USED FOR UNKNOWN INDICATION
     Dosage: 40 ?G/KG, QD
     Route: 065
  8. SALINE [Concomitant]
     Active Substance: SODIUM CHLORIDE
     Indication: POLYURIA
     Dosage: 2.01 PER 1.73 M2/24 H FOR 4 H BEFORE TREATMENT
     Route: 065
  9. TOPOTECAN HYDROCHLORIDE. [Suspect]
     Active Substance: TOPOTECAN HYDROCHLORIDE
     Indication: NEUROBLASTOMA
     Dosage: 0.7 MG/M2, QD (INFUSED OVER 30 MIN BEFORE ADMINISTRATION OF 131I-MIBG)
     Route: 041
  10. IOBENGUANE (131 I) [Suspect]
     Active Substance: IOBENGUANE I-131
     Dosage: SECOND DOSE: 8.7
     Route: 041
  11. POTASSIUM IODIDE. [Concomitant]
     Active Substance: POTASSIUM IODIDE
     Indication: PROPHYLAXIS
     Dosage: UNK
     Route: 065

REACTIONS (4)
  - Product use in unapproved indication [Unknown]
  - Neuroblastoma [Fatal]
  - Thrombocytopenia [Unknown]
  - Anaemia [Unknown]
